FAERS Safety Report 20702620 (Version 1)
Quarter: 2022Q2

REPORT INFORMATION
  Report Type: Spontaneous
  Country: CN (occurrence: CN)
  Receive Date: 20220412
  Receipt Date: 20220412
  Transmission Date: 20220720
  Serious: Yes (Other)
  Sender: FDA-Public Use
  Company Number: CN-LUPIN PHARMACEUTICALS INC.-2022-05380

PATIENT
  Age: 48 Year
  Sex: Male

DRUGS (10)
  1. LANSOPRAZOLE [Suspect]
     Active Substance: LANSOPRAZOLE
     Indication: Helicobacter infection
     Dosage: UNK,THE PATIENT RECEIVED TWO COURSES
     Route: 065
  2. METRONIDAZOLE [Suspect]
     Active Substance: METRONIDAZOLE
     Indication: Helicobacter infection
     Dosage: UNK,THE PATIENT RECEIVED TWO COURSES OF METRONIDAZOLE
     Route: 065
  3. BISMUTH [Suspect]
     Active Substance: BISMUTH
     Indication: Helicobacter infection
     Dosage: UNK,THE PATIENT RECEIVED TWO COURSES OF BISMUTH PECTIN
     Route: 065
  4. AMOXICILLIN [Suspect]
     Active Substance: AMOXICILLIN
     Indication: Helicobacter infection
     Dosage: UNK,THE PATIENT RECEIVED TWO COURSES OF AMOXICILLIN
     Route: 065
  5. RITUXIMAB [Concomitant]
     Active Substance: RITUXIMAB
     Indication: Extranodal marginal zone B-cell lymphoma (MALT type)
     Dosage: UNK,THE PATIENT RECEIVED TWO COURSES OF R-CVP CHEMOTHERAPY
     Route: 065
  6. CYCLOPHOSPHAMIDE [Concomitant]
     Active Substance: CYCLOPHOSPHAMIDE
     Indication: Extranodal marginal zone B-cell lymphoma (MALT type)
     Dosage: UNK,THE PATIENT RECEIVED TWO COURSES OF R-CVP THERAPY
     Route: 065
  7. VINCRISTINE [Concomitant]
     Active Substance: VINCRISTINE
     Indication: Extranodal marginal zone B-cell lymphoma (MALT type)
     Dosage: UNK,THE PATIENT RECEIVED TWO COURSES OF R-CVP
     Route: 065
  8. PREDNISONE [Concomitant]
     Active Substance: PREDNISONE
     Indication: Extranodal marginal zone B-cell lymphoma (MALT type)
     Dosage: UNK,THE PATIENT RECEIVED TWO COURSES OF R-CVP THERAPY
     Route: 065
  9. LENALIDOMIDE [Concomitant]
     Active Substance: LENALIDOMIDE
     Indication: Extranodal marginal zone B-cell lymphoma (MALT type)
     Dosage: 25 MG,ON DAYS 1-21
     Route: 065
  10. BENDAMUSTINE [Concomitant]
     Active Substance: BENDAMUSTINE
     Indication: Extranodal marginal zone B-cell lymphoma (MALT type)
     Dosage: 90 MILLIGRAM/SQ. METER,ON DAYS 1-2
     Route: 065

REACTIONS (3)
  - Drug ineffective [Unknown]
  - Drug ineffective for unapproved indication [Unknown]
  - Off label use [Unknown]
